FAERS Safety Report 10974354 (Version 1)
Quarter: 2015Q1

REPORT INFORMATION
  Report Type: Spontaneous
  Country: US (occurrence: None)
  Receive Date: 20150331
  Receipt Date: 20150331
  Transmission Date: 20150721
  Serious: No
  Sender: FDA-Public Use
  Company Number: None

PATIENT
  Age: 58 Year
  Sex: Female

DRUGS (6)
  1. AMPYRA [Suspect]
     Active Substance: DALFAMPRIDINE
     Indication: MULTIPLE SCLEROSIS
     Route: 048
     Dates: start: 20100712
  2. LISINOPRIL. [Concomitant]
     Active Substance: LISINOPRIL
  3. BACLOFEN. [Concomitant]
     Active Substance: BACLOFEN
  4. SIMVASTATIN. [Concomitant]
     Active Substance: SIMVASTATIN
  5. ONDANSETRON [Concomitant]
     Active Substance: ONDANSETRON
  6. TECFIDERA [Concomitant]
     Active Substance: DIMETHYL FUMARATE

REACTIONS (1)
  - Laboratory test abnormal [None]

NARRATIVE: CASE EVENT DATE: 20141111
